FAERS Safety Report 13855407 (Version 1)
Quarter: 2017Q3

REPORT INFORMATION
  Report Type: Spontaneous
  Country: US (occurrence: US)
  Receive Date: 20170810
  Receipt Date: 20170810
  Transmission Date: 20171127
  Serious: No
  Sender: FDA-Public Use
  Company Number: US-VIFOR (INTERNATIONAL) INC.-VIT-2017-06897

PATIENT
  Sex: Male

DRUGS (28)
  1. FLUCONAZOLE. [Concomitant]
     Active Substance: FLUCONAZOLE
  2. METHYLPREDNISOLONE. [Concomitant]
     Active Substance: METHYLPREDNISOLONE
  3. ERGOCALCIFEROL. [Concomitant]
     Active Substance: ERGOCALCIFEROL
  4. ALLOPURINOL. [Concomitant]
     Active Substance: ALLOPURINOL
  5. LEXAPRO [Concomitant]
     Active Substance: ESCITALOPRAM OXALATE
  6. TRAZODONE HYDROCHLORIDE. [Concomitant]
     Active Substance: TRAZODONE HYDROCHLORIDE
  7. VELTASSA [Suspect]
     Active Substance: PATIROMER
     Indication: HYPERKALAEMIA
     Route: 048
  8. CALCIUM [Concomitant]
     Active Substance: CALCIUM
  9. GABAPENTIN. [Concomitant]
     Active Substance: GABAPENTIN
  10. TESSALON [Concomitant]
     Active Substance: BENZONATATE
  11. XALATAN [Concomitant]
     Active Substance: LATANOPROST
  12. NEXIUM [Concomitant]
     Active Substance: ESOMEPRAZOLE MAGNESIUM
  13. COUMADIN [Concomitant]
     Active Substance: WARFARIN SODIUM
  14. PARACETAMOL [Concomitant]
     Active Substance: ACETAMINOPHEN
  15. LASIX [Concomitant]
     Active Substance: FUROSEMIDE
  16. LOSARTAN POTASSIUM. [Concomitant]
     Active Substance: LOSARTAN POTASSIUM
  17. HYDRALAZINE HYDROCHLORIDE. [Concomitant]
     Active Substance: HYDRALAZINE HYDROCHLORIDE
  18. MAGNESIUM OXIDE. [Concomitant]
     Active Substance: MAGNESIUM OXIDE
  19. COMBIGAN [Concomitant]
     Active Substance: BRIMONIDINE TARTRATE\TIMOLOL MALEATE
  20. DEPAKOTE [Concomitant]
     Active Substance: DIVALPROEX SODIUM
  21. VESICARE [Concomitant]
     Active Substance: SOLIFENACIN SUCCINATE
  22. ZETIA [Concomitant]
     Active Substance: EZETIMIBE
  23. AMLODIPINE BESILATE [Concomitant]
     Active Substance: AMLODIPINE BESYLATE
  24. DEPO-TESTOSTERONE [Concomitant]
     Active Substance: TESTOSTERONE CYPIONATE
  25. LEVEMIR [Concomitant]
     Active Substance: INSULIN DETEMIR
  26. NOVOLOG [Concomitant]
     Active Substance: INSULIN ASPART
  27. ERGOCALCIFEROL. [Concomitant]
     Active Substance: ERGOCALCIFEROL
  28. EDARBI [Concomitant]
     Active Substance: AZILSARTAN KAMEDOXOMIL

REACTIONS (2)
  - Drug dose omission [Unknown]
  - Papule [Unknown]
